FAERS Safety Report 5739797-7 (Version None)
Quarter: 2008Q2

REPORT INFORMATION
  Report Type: 
  Country: None (occurrence: None)
  Receive Date: 20080512
  Receipt Date: 20080512
  Transmission Date: 20081010
  Serious: No
  Sender: FDA-Public Use
  Company Number: None

PATIENT
  Age: 46 Year
  Sex: Female

DRUGS (1)
  1. RESTASIS [Suspect]

REACTIONS (2)
  - DRUG INEFFECTIVE [None]
  - EYELID DISORDER [None]
